FAERS Safety Report 25024765 (Version 2)
Quarter: 2025Q1

REPORT INFORMATION
  Report Type: Spontaneous
  Country: US (occurrence: US)
  Receive Date: 20250228
  Receipt Date: 20250303
  Transmission Date: 20250409
  Serious: No
  Sender: MYLAN
  Company Number: US-MYLANLABS-2025M1017721

PATIENT
  Sex: Female

DRUGS (4)
  1. NORETHINDRONE [Suspect]
     Active Substance: NORETHINDRONE
     Indication: Oral contraception
  2. NORETHINDRONE [Suspect]
     Active Substance: NORETHINDRONE
     Route: 048
  3. NORETHINDRONE [Suspect]
     Active Substance: NORETHINDRONE
     Route: 048
  4. NORETHINDRONE [Suspect]
     Active Substance: NORETHINDRONE

REACTIONS (3)
  - Bone pain [Unknown]
  - Discomfort [Unknown]
  - Anxiety [Not Recovered/Not Resolved]

NARRATIVE: CASE EVENT DATE: 20250201
